FAERS Safety Report 22187751 (Version 3)
Quarter: 2023Q2

REPORT INFORMATION
  Report Type: Report from Study
  Country: JP (occurrence: JP)
  Receive Date: 20230408
  Receipt Date: 20230614
  Transmission Date: 20230721
  Serious: Yes (Death)
  Sender: FDA-Public Use
  Company Number: JP-SERVIER-S23003376

PATIENT
  Age: 60 Year
  Sex: Female
  Weight: 39 kg

DRUGS (16)
  1. ONIVYDE [Suspect]
     Active Substance: IRINOTECAN HYDROCHLORIDE
     Indication: Pancreatic carcinoma
     Dosage: 50 MG/M2
     Route: 065
     Dates: start: 20210714, end: 20210714
  2. ONIVYDE [Suspect]
     Active Substance: IRINOTECAN HYDROCHLORIDE
     Dosage: 40 MG/M2
     Route: 065
     Dates: start: 20210804, end: 20210804
  3. ONIVYDE [Suspect]
     Active Substance: IRINOTECAN HYDROCHLORIDE
     Dosage: 40 MG/M2
     Route: 065
     Dates: start: 20210825, end: 20210825
  4. ONIVYDE [Suspect]
     Active Substance: IRINOTECAN HYDROCHLORIDE
     Dosage: 40 MG/M2
     Route: 065
     Dates: start: 20210908, end: 20210908
  5. ONIVYDE [Suspect]
     Active Substance: IRINOTECAN HYDROCHLORIDE
     Dosage: 40 MG/M2
     Route: 065
     Dates: start: 20210922, end: 20210922
  6. LEVOLEUCOVORIN CALCIUM [Concomitant]
     Active Substance: LEVOLEUCOVORIN CALCIUM
     Indication: Pancreatic carcinoma
     Dosage: 200 MG/M2
     Route: 065
     Dates: start: 20210714, end: 20210714
  7. LEVOLEUCOVORIN CALCIUM [Concomitant]
     Active Substance: LEVOLEUCOVORIN CALCIUM
     Dosage: 200 MG/M2
     Route: 065
     Dates: start: 20210804, end: 20210804
  8. LEVOLEUCOVORIN CALCIUM [Concomitant]
     Active Substance: LEVOLEUCOVORIN CALCIUM
     Dosage: 200 MG/M2
     Route: 065
     Dates: start: 20210825, end: 20210825
  9. LEVOLEUCOVORIN CALCIUM [Concomitant]
     Active Substance: LEVOLEUCOVORIN CALCIUM
     Dosage: 200 MG/M2
     Route: 065
     Dates: start: 20210908, end: 20210908
  10. LEVOLEUCOVORIN CALCIUM [Concomitant]
     Active Substance: LEVOLEUCOVORIN CALCIUM
     Dosage: 200 MG/M2
     Route: 065
     Dates: start: 20210922, end: 20210922
  11. FLUOROURACIL [Concomitant]
     Active Substance: FLUOROURACIL
     Indication: Pancreatic carcinoma
     Dosage: 2400 MG/M2
     Route: 065
     Dates: start: 20210714, end: 20210716
  12. FLUOROURACIL [Concomitant]
     Active Substance: FLUOROURACIL
     Dosage: 2000 MG/M2
     Route: 065
     Dates: start: 20210804, end: 20210806
  13. FLUOROURACIL [Concomitant]
     Active Substance: FLUOROURACIL
     Dosage: 2000 MG/M2
     Route: 065
     Dates: start: 20210825, end: 20210827
  14. FLUOROURACIL [Concomitant]
     Active Substance: FLUOROURACIL
     Dosage: 2000 MG/M2
     Route: 065
     Dates: start: 20210908, end: 20210910
  15. FLUOROURACIL [Concomitant]
     Active Substance: FLUOROURACIL
     Dosage: 2000 MG/M2
     Route: 065
     Dates: start: 20210922, end: 20210924
  16. APREPITANT [Concomitant]
     Active Substance: APREPITANT
     Indication: Chemotherapy side effect prophylaxis
     Route: 048

REACTIONS (2)
  - Malignant neoplasm progression [Fatal]
  - Off label use [Recovered/Resolved]

NARRATIVE: CASE EVENT DATE: 20210714
